FAERS Safety Report 4885156-9 (Version None)
Quarter: 2006Q1

REPORT INFORMATION
  Report Type: 
  Country: None (occurrence: None)
  Receive Date: 20060117
  Receipt Date: 20060109
  Transmission Date: 20060701
  Serious: Yes (Disabling, Other)
  Sender: FDA-Public Use
  Company Number: 200510410BWH

PATIENT
  Age: 57 Year
  Sex: Male
  Weight: 96.1626 kg

DRUGS (17)
  1. CIPRO [Suspect]
     Indication: PROSTATIC DISORDER
     Dosage: 500 MG, BID, ORAL
     Route: 048
     Dates: start: 19991030, end: 19991108
  2. CIPRO [Suspect]
     Indication: URINARY TRACT INFECTION
     Dosage: 500 MG, BID, ORAL
     Route: 048
     Dates: start: 19991030, end: 19991108
  3. CIPRO [Suspect]
     Indication: PROSTATIC DISORDER
     Dosage: 500 MG, BID, ORAL
     Route: 048
     Dates: start: 20050303
  4. CIPRO [Suspect]
     Indication: URINARY TRACT INFECTION
     Dosage: 500 MG, BID, ORAL
     Route: 048
     Dates: start: 20050303
  5. CIPROFLOXACIN [Suspect]
     Indication: PROSTATIC DISORDER
     Dosage: 500 MG, BID, ORAL
     Route: 048
     Dates: start: 19960502, end: 19960509
  6. CIPROFLOXACIN [Suspect]
     Indication: URINARY TRACT INFECTION
     Dosage: 500 MG, BID, ORAL
     Route: 048
     Dates: start: 19960502, end: 19960509
  7. CIPROFLOXACIN [Suspect]
     Indication: PROSTATIC DISORDER
     Dosage: 500 MG, BID, ORAL
     Route: 048
     Dates: start: 20040401, end: 20040414
  8. CIPROFLOXACIN [Suspect]
     Indication: URINARY TRACT INFECTION
     Dosage: 500 MG, BID, ORAL
     Route: 048
     Dates: start: 20040401, end: 20040414
  9. LEVAQUIN [Suspect]
     Dates: start: 20001220
  10. LEVAQUIN [Suspect]
     Dates: start: 20050205
  11. TEQUIN [Suspect]
     Dates: start: 20030308
  12. DIGITEK [Concomitant]
  13. DEPO-TESTOSTERONE [Concomitant]
  14. ASPIRIN [Concomitant]
  15. LEVOTHROID [Concomitant]
  16. CORTISONE ACETATE TAB [Concomitant]
  17. FAMVIR /UNK/ [Concomitant]

REACTIONS (31)
  - AMNESIA [None]
  - ARRHYTHMIA [None]
  - ARTHRALGIA [None]
  - ARTHRITIS [None]
  - ATRIAL FIBRILLATION [None]
  - BACK PAIN [None]
  - BLOOD CREATININE INCREASED [None]
  - BONE EROSION [None]
  - CARTILAGE INJURY [None]
  - DEAFNESS [None]
  - EYE IRRITATION [None]
  - EYE PAIN [None]
  - IMPAIRED WORK ABILITY [None]
  - LIGAMENT INJURY [None]
  - MENISCUS LESION [None]
  - MYALGIA [None]
  - OCULAR HYPERAEMIA [None]
  - PAIN IN EXTREMITY [None]
  - PAIN IN JAW [None]
  - PATELLA FRACTURE [None]
  - PATELLOFEMORAL PAIN SYNDROME [None]
  - PROSTATIC DISORDER [None]
  - ROTATOR CUFF SYNDROME [None]
  - SPONDYLOLISTHESIS [None]
  - SPONDYLOLYSIS [None]
  - SYNOVITIS [None]
  - TENDON RUPTURE [None]
  - TINNITUS [None]
  - URINARY TRACT INFECTION [None]
  - VISION BLURRED [None]
  - VISUAL ACUITY REDUCED [None]
